FAERS Safety Report 19004098 (Version 1)
Quarter: 2021Q1

REPORT INFORMATION
  Report Type: Spontaneous
  Country: SG (occurrence: SG)
  Receive Date: 20210312
  Receipt Date: 20210312
  Transmission Date: 20210420
  Serious: Yes (Other)
  Sender: FDA-Public Use
  Company Number: SG-LUNDBECK-DKLU3030005

PATIENT
  Age: 62 Year
  Sex: Male

DRUGS (1)
  1. CLOBAZAM. [Suspect]
     Active Substance: CLOBAZAM
     Indication: PRODUCT USED FOR UNKNOWN INDICATION
     Route: 065

REACTIONS (2)
  - Mood altered [Unknown]
  - Fatigue [Unknown]

NARRATIVE: CASE EVENT DATE: 20210104
